FAERS Safety Report 20128918 (Version 2)
Quarter: 2021Q4

REPORT INFORMATION
  Report Type: Report from Study
  Country: CO (occurrence: CO)
  Receive Date: 20211130
  Receipt Date: 20211207
  Transmission Date: 20220303
  Serious: Yes (Other)
  Sender: FDA-Public Use
  Company Number: CO-SA-SAC20211123001355

PATIENT
  Age: 46 Year
  Sex: Male

DRUGS (6)
  1. AGALSIDASE BETA [Suspect]
     Active Substance: AGALSIDASE BETA
     Indication: Fabry^s disease
     Dosage: 60 MG, Q15D
     Route: 041
     Dates: start: 20190726
  2. COVID-19 VACCINE NOS [Concomitant]
     Active Substance: COVID-19 VACCINE NOS
     Indication: Immunisation
  3. ENALAPRIL [Concomitant]
     Active Substance: ENALAPRIL
     Indication: Renal failure
     Dosage: 5 MG, QD
  4. FUROSEMIDE [Concomitant]
     Active Substance: FUROSEMIDE
     Indication: Renal failure
     Dosage: 40 MG, BID
  5. CALCITRIOL [Concomitant]
     Active Substance: CALCITRIOL
     Indication: Renal failure
     Dosage: 0.25 MG, QD
     Route: 065
  6. ATORVASTATIN [Concomitant]
     Active Substance: ATORVASTATIN
     Indication: Renal failure
     Dosage: 20 MG, QD
     Route: 065

REACTIONS (8)
  - Seizure [Recovering/Resolving]
  - Hypoacusis [Recovering/Resolving]
  - Tinnitus [Recovering/Resolving]
  - Fatigue [Recovered/Resolved]
  - Rash [Recovered/Resolved]
  - Tachycardia [Recovering/Resolving]
  - Headache [Recovering/Resolving]
  - Pain [Recovering/Resolving]

NARRATIVE: CASE EVENT DATE: 20211102
